FAERS Safety Report 11461098 (Version 1)
Quarter: 2015Q3

REPORT INFORMATION
  Report Type: Spontaneous
  Country: US (occurrence: US)
  Receive Date: 20150831
  Receipt Date: 20150831
  Transmission Date: 20151125
  Serious: No
  Sender: FDA-Public Use
  Company Number: US-ELI_LILLY_AND_COMPANY-US201006005811

PATIENT
  Sex: Male

DRUGS (6)
  1. DOXAZOSIN MESYLATE. [Concomitant]
     Active Substance: DOXAZOSIN MESYLATE
  2. CYMBALTA [Suspect]
     Active Substance: DULOXETINE HYDROCHLORIDE
     Indication: DEPRESSION
     Dosage: 30 MG, 3/D
  3. PANTOPRAZOLE [Concomitant]
     Active Substance: PANTOPRAZOLE SODIUM
  4. PRAVASTATIN [Concomitant]
     Active Substance: PRAVASTATIN\PRAVASTATIN SODIUM
  5. CYMBALTA [Suspect]
     Active Substance: DULOXETINE HYDROCHLORIDE
     Dosage: 30 MG, 2/D
  6. ZETIA [Concomitant]
     Active Substance: EZETIMIBE

REACTIONS (13)
  - Somnolence [Recovering/Resolving]
  - Headache [Recovering/Resolving]
  - Fatigue [Recovering/Resolving]
  - Discomfort [Recovering/Resolving]
  - Feeling abnormal [Recovering/Resolving]
  - Hypoacusis [Unknown]
  - Abdominal discomfort [Recovering/Resolving]
  - Visual impairment [Unknown]
  - Paraesthesia [Recovering/Resolving]
  - Dizziness [Recovering/Resolving]
  - Malaise [Recovering/Resolving]
  - Initial insomnia [Recovering/Resolving]
  - Drug withdrawal syndrome [Recovering/Resolving]
